FAERS Safety Report 5476027-8 (Version None)
Quarter: 2007Q4

REPORT INFORMATION
  Report Type: 
  Country: None (occurrence: None)
  Receive Date: 20071003
  Receipt Date: 20070926
  Transmission Date: 20080405
  Serious: Yes (Other)
  Sender: FDA-Public Use
  Company Number: JP-ASTRAZENECA-2007AP06165

PATIENT
  Age: 51 Year
  Sex: Female
  Weight: 47 kg

DRUGS (6)
  1. XYLOCAINE W/ EPINEPHRINE [Suspect]
     Indication: INFILTRATION ANAESTHESIA
  2. XYLOCAINE W/ EPINEPHRINE [Suspect]
  3. LAUGHING GAS [Concomitant]
     Route: 055
  4. OXYGEN [Concomitant]
     Route: 055
  5. MIDAZOLAM HCL [Concomitant]
     Route: 042
  6. MIDAZOLAM HCL [Concomitant]
     Route: 042

REACTIONS (2)
  - VENTRICULAR EXTRASYSTOLES [None]
  - VENTRICULAR TACHYCARDIA [None]
